FAERS Safety Report 5220674-5 (Version None)
Quarter: 2007Q1

REPORT INFORMATION
  Report Type: 
  Country: None (occurrence: None)
  Receive Date: 20070126
  Receipt Date: 20070115
  Transmission Date: 20070707
  Serious: Yes (Other)
  Sender: FDA-Public Use
  Company Number: PHMT2007CA00510

PATIENT
  Age: 82 Year
  Sex: Male

DRUGS (2)
  1. EXJADE [Suspect]
     Indication: IRON OVERLOAD
     Dosage: INCREASED PROGRESSIVELY UP TO 2000 MG/DAY
  2. EXJADE [Suspect]
     Dosage: 750 MG DAILY
     Route: 048
     Dates: start: 20070105

REACTIONS (6)
  - ABDOMINAL PAIN [None]
  - DYSPNOEA [None]
  - FREQUENT BOWEL MOVEMENTS [None]
  - GASTROINTESTINAL DISORDER [None]
  - OEDEMA MOUTH [None]
  - PHARYNGOLARYNGEAL PAIN [None]
